FAERS Safety Report 26076912 (Version 1)
Quarter: 2025Q4

REPORT INFORMATION
  Report Type: Spontaneous
  Country: EU (occurrence: EU)
  Receive Date: 20251121
  Receipt Date: 20251121
  Transmission Date: 20260117
  Serious: Yes (Death)
  Sender: INCYTE
  Company Number: EU-002147023-NVSC2025FR178757

PATIENT
  Age: 39 Year

DRUGS (1)
  1. RUXOLITINIB [Suspect]
     Active Substance: RUXOLITINIB
     Indication: Product used for unknown indication
     Dosage: 20 MG EVERY 3 MONTHS
     Route: 065

REACTIONS (1)
  - Death [Fatal]
